FAERS Safety Report 24000816 (Version 1)
Quarter: 2024Q2

REPORT INFORMATION
  Report Type: Spontaneous
  Country: BR (occurrence: BR)
  Receive Date: 20240621
  Receipt Date: 20240621
  Transmission Date: 20240715
  Serious: Yes (Hospitalization)
  Sender: FDA-Public Use
  Company Number: BR-BAYER-2024A087761

PATIENT
  Age: 34 Year
  Sex: Female

DRUGS (1)
  1. LEVONORGESTREL [Suspect]
     Active Substance: LEVONORGESTREL
     Indication: Contraception
     Dosage: UNK
     Route: 015
     Dates: start: 20240115, end: 20240608

REACTIONS (4)
  - Heavy menstrual bleeding [Not Recovered/Not Resolved]
  - Weight increased [Not Recovered/Not Resolved]
  - Weight loss poor [Not Recovered/Not Resolved]
  - Hair texture abnormal [Not Recovered/Not Resolved]
